FAERS Safety Report 24050074 (Version 1)
Quarter: 2024Q3

REPORT INFORMATION
  Report Type: Spontaneous
  Country: US (occurrence: US)
  Receive Date: 20240704
  Receipt Date: 20240704
  Transmission Date: 20241017
  Serious: No
  Sender: HETERO
  Company Number: US-HETERO-HET2024US01754

PATIENT

DRUGS (1)
  1. LEVETIRACETAM [Suspect]
     Active Substance: LEVETIRACETAM
     Indication: Seizure
     Dosage: UNK
     Route: 048

REACTIONS (7)
  - Palpitations [Unknown]
  - Swelling face [Unknown]
  - Hypertension [Unknown]
  - Headache [Unknown]
  - Rash [Unknown]
  - Product substitution issue [Unknown]
  - Therapeutic response decreased [Unknown]
